FAERS Safety Report 21270318 (Version 1)
Quarter: 2022Q3

REPORT INFORMATION
  Report Type: Spontaneous
  Country: NL (occurrence: NL)
  Receive Date: 20220830
  Receipt Date: 20220830
  Transmission Date: 20221026
  Serious: Yes (Other)
  Sender: FDA-Public Use
  Company Number: None

PATIENT
  Sex: Male
  Weight: 88.3 kg

DRUGS (10)
  1. PANTOPRAZOLE [Suspect]
     Active Substance: PANTOPRAZOLE
     Indication: Prophylaxis
     Dosage: 1X PER DAY 1 PIECE
     Route: 065
     Dates: start: 202106, end: 20220503
  2. ISOSORBIDEDINITRAAT [Concomitant]
     Dosage: TABLET, 30 MG (MILLIGRAM)
     Route: 065
  3. NIFEDIPINE [Concomitant]
     Active Substance: NIFEDIPINE
     Dosage: CONTROLLED-RELEASE TABLET, 30 MG (MILLIGRAM)
     Route: 065
  4. NATRIUM BICARBONAT [Concomitant]
     Dosage: TABLET, 500 MG (MILLIGRAM)
     Route: 065
  5. DOXAZOSIN MESYLATE [Concomitant]
     Active Substance: DOXAZOSIN MESYLATE
     Dosage: CONTROLLED-RELEASE TABLET, 4 MG (MILLIGRAM)
     Route: 065
  6. Fusid [Concomitant]
     Dosage: TABLET, 40 MG (MILLIGRAM)
     Route: 065
  7. CLOPIDOGREL [Concomitant]
     Active Substance: CLOPIDOGREL BISULFATE
     Dosage: TABLET, 75 MG (MILLIGRAM)
     Route: 065
  8. METOPROLOL TARTRATE [Concomitant]
     Active Substance: METOPROLOL TARTRATE
     Dosage: CONTROLLED-RELEASE TABLET, 50 MG (MILLIGRAM)
     Route: 065
  9. ELIQUIS [Concomitant]
     Active Substance: APIXABAN
     Dosage: TABLET, 5 MG (MILLIGRAM)
     Route: 065
  10. LIPITOR [Concomitant]
     Active Substance: ATORVASTATIN CALCIUM
     Dosage: TABLET, 20 MG (MILLIGRAM)
     Route: 065

REACTIONS (1)
  - Dermatitis exfoliative generalised [Recovering/Resolving]
